FAERS Safety Report 10784987 (Version 1)
Quarter: 2015Q1

REPORT INFORMATION
  Report Type: Spontaneous
  Country: US (occurrence: US)
  Receive Date: 20150211
  Receipt Date: 20150211
  Transmission Date: 20150721
  Serious: No
  Sender: FDA-Public Use
  Company Number: US-GLAXOSMITHKLINE-A1066582A

PATIENT

DRUGS (13)
  1. LEVOTHYROXINE [Concomitant]
     Active Substance: LEVOTHYROXINE
  2. AMBIEN [Concomitant]
     Active Substance: ZOLPIDEM TARTRATE
  3. PHENTERMINE [Concomitant]
     Active Substance: PHENTERMINE
  4. LAMICTAL [Suspect]
     Active Substance: LAMOTRIGINE
     Indication: BIPOLAR DISORDER
     Dosage: 100 MG, UNKNOWN DOSING
     Route: 065
     Dates: start: 20111207
  5. ZOLOFT [Suspect]
     Active Substance: SERTRALINE HYDROCHLORIDE
     Indication: DEPRESSION
     Route: 065
  6. APRISO [Suspect]
     Active Substance: MESALAMINE
     Indication: COLITIS
  7. APRISO [Suspect]
     Active Substance: MESALAMINE
     Indication: RECTAL HAEMORRHAGE
  8. APRISO [Suspect]
     Active Substance: MESALAMINE
     Indication: OESOPHAGITIS
  9. XANAX [Concomitant]
     Active Substance: ALPRAZOLAM
  10. OMEPRAZOLE. [Concomitant]
     Active Substance: OMEPRAZOLE
  11. APRISO [Suspect]
     Active Substance: MESALAMINE
     Indication: GASTRITIS
     Route: 065
  12. SINGULAIR [Suspect]
     Active Substance: MONTELUKAST SODIUM
     Indication: ASTHMA
     Route: 065
  13. SINGULAIR [Suspect]
     Active Substance: MONTELUKAST SODIUM
     Indication: MULTIPLE ALLERGIES

REACTIONS (1)
  - Drug administration error [Unknown]
